FAERS Safety Report 6956060-7 (Version None)
Quarter: 2010Q3

REPORT INFORMATION
  Report Type: 
  Country: None (occurrence: None)
  Receive Date: 20100830
  Receipt Date: 20100104
  Transmission Date: 20110219
  Serious: No
  Sender: FDA-Public Use
  Company Number: US-AMGEN-KDL395486

PATIENT
  Sex: Male

DRUGS (3)
  1. NEUPOGEN [Suspect]
     Indication: PRODUCT USED FOR UNKNOWN INDICATION
     Dates: start: 20091001
  2. PEGASYS [Suspect]
  3. RIBAVIRIN [Suspect]

REACTIONS (11)
  - ASTHENIA [None]
  - ASTHENOPIA [None]
  - BONE PAIN [None]
  - CONFUSIONAL STATE [None]
  - DIARRHOEA [None]
  - DISTURBANCE IN ATTENTION [None]
  - FATIGUE [None]
  - MEMORY IMPAIRMENT [None]
  - NAUSEA [None]
  - PAIN [None]
  - VISION BLURRED [None]
